FAERS Safety Report 9532814 (Version 1)
Quarter: 2013Q3

REPORT INFORMATION
  Report Type: Spontaneous
  Country: FR (occurrence: FR)
  Receive Date: 20130918
  Receipt Date: 20130918
  Transmission Date: 20140515
  Serious: Yes (Hospitalization)
  Sender: FDA-Public Use
  Company Number: FR-ASTRAZENECA-2013SE69215

PATIENT
  Age: 31392 Day
  Sex: Female

DRUGS (7)
  1. HYTACAND [Suspect]
     Indication: HYPERTENSION
     Dosage: 8 MG CANDESARTAN / 12.5 MG HYDROCHLOROTHIAZIDE, 1 DF, DAILY, LONG LASTING TREATMENT
     Route: 048
     Dates: end: 20130814
  2. METFORMINE [Suspect]
     Indication: DIABETES MELLITUS
     Dosage: 1000 MILLIGRAMS, TWO TIMES A DAY, LONG LASTING TREATMENT
     Route: 048
     Dates: end: 20130814
  3. SEROPRAM [Concomitant]
  4. DAFALGAN [Concomitant]
  5. INEXIUM [Concomitant]
  6. JANUVIA [Concomitant]
  7. LOXEN [Concomitant]

REACTIONS (5)
  - Lactic acidosis [Recovered/Resolved]
  - Malaise [Unknown]
  - Dehydration [Unknown]
  - Diarrhoea [Unknown]
  - Blood creatinine increased [Unknown]
